FAERS Safety Report 6241146-5 (Version None)
Quarter: 2009Q2

REPORT INFORMATION
  Report Type: 
  Country: None (occurrence: None)
  Receive Date: 20090623
  Receipt Date: 20090622
  Transmission Date: 20091009
  Serious: No
  Sender: FDA-Public Use
  Company Number: US-B.I. PHARMACEUTICALS,INC./RIDGEFIELD-2009-BP-07536BP

PATIENT
  Sex: Female

DRUGS (5)
  1. CATAPRES-TTS-1 [Suspect]
     Indication: HYPERTENSION
     Dosage: 0.2 MG
     Route: 061
     Dates: start: 20090514
  2. LORA TAB [Concomitant]
     Indication: FIBROMYALGIA
  3. ZOLOFT [Concomitant]
     Indication: DEPRESSION
  4. ZANTAC [Concomitant]
     Indication: GASTROINTESTINAL DISORDER
  5. CARDENE [Concomitant]
     Indication: HYPERTENSION

REACTIONS (5)
  - BLOOD PRESSURE DECREASED [None]
  - DIZZINESS [None]
  - EXCORIATION [None]
  - FALL [None]
  - MUSCULOSKELETAL PAIN [None]
